FAERS Safety Report 9908435 (Version 1)
Quarter: 2014Q1

REPORT INFORMATION
  Report Type: Spontaneous
  Country: US (occurrence: None)
  Receive Date: 20140214
  Receipt Date: 20140214
  Transmission Date: 20141002
  Serious: Yes (Hospitalization)
  Sender: FDA-Public Use
  Company Number: None

PATIENT
  Age: 64 None
  Sex: Male
  Weight: 106.7 kg

DRUGS (14)
  1. COUMADIN [Suspect]
     Indication: ATRIAL FIBRILLATION
     Dosage: CHRONIC?MWF
     Route: 048
  2. COUMADIN [Suspect]
     Indication: ATRIAL FIBRILLATION
     Dosage: CHRONIC?TTHSS
     Route: 048
  3. AMBIEN [Concomitant]
  4. KLOR-CON [Concomitant]
  5. PULMICORT [Concomitant]
  6. ATROVENT [Concomitant]
  7. LORTAB [Concomitant]
  8. PEPCID [Concomitant]
  9. LASIX [Concomitant]
  10. PERFORMIST [Concomitant]
  11. DILTIAZEM [Concomitant]
  12. METHOTREXATE [Concomitant]
  13. FOLIC ACID [Concomitant]
  14. LAMISIL [Concomitant]

REACTIONS (2)
  - Haemoptysis [None]
  - Pneumonia [None]
